FAERS Safety Report 12407697 (Version 8)
Quarter: 2017Q3

REPORT INFORMATION
  Report Type: Report from Study
  Country: None (occurrence: DE)
  Receive Date: 20160526
  Receipt Date: 20170920
  Transmission Date: 20171127
  Serious: Yes (Hospitalization, Other)
  Sender: FDA-Public Use
  Company Number: DE-ABBVIE-16K-062-1569034-00

PATIENT
  Age: 29 Year
  Sex: Female
  Weight: 71 kg

DRUGS (9)
  1. FOLIC ACID. [Concomitant]
     Active Substance: FOLIC ACID
     Indication: PRODUCT USED FOR UNKNOWN INDICATION
  2. HUMIRA [Suspect]
     Active Substance: ADALIMUMAB
     Indication: COLITIS ULCERATIVE
     Route: 058
     Dates: start: 20141210, end: 20160524
  3. HUMIRA [Suspect]
     Active Substance: ADALIMUMAB
     Route: 058
     Dates: start: 201703, end: 201703
  4. L-THYROXINE [Concomitant]
     Active Substance: LEVOTHYROXINE
     Indication: PRODUCT USED FOR UNKNOWN INDICATION
  5. FLAXSEED [Concomitant]
     Active Substance: FLAX SEED
     Indication: PRODUCT USED FOR UNKNOWN INDICATION
  6. HUMIRA [Suspect]
     Active Substance: ADALIMUMAB
     Dosage: HUMIRA 40MG/0.4ML
     Route: 058
     Dates: start: 20170306, end: 201706
  7. PENTASA XTEND [Concomitant]
     Active Substance: MESALAMINE
     Indication: PRODUCT USED FOR UNKNOWN INDICATION
  8. VITAMIN B12 [Concomitant]
     Active Substance: CYANOCOBALAMIN
     Indication: PRODUCT USED FOR UNKNOWN INDICATION
     Dates: start: 2016
  9. HYDROCORTISONE. [Concomitant]
     Active Substance: HYDROCORTISONE
     Indication: PRODUCT USED FOR UNKNOWN INDICATION

REACTIONS (12)
  - Nasal adhesions [Recovered/Resolved]
  - Diarrhoea [Not Recovered/Not Resolved]
  - Cortisol free urine increased [Not Recovered/Not Resolved]
  - Colitis ulcerative [Recovered/Resolved]
  - Impaired work ability [Recovering/Resolving]
  - Haematochezia [Recovered/Resolved]
  - Pituitary tumour benign [Recovered/Resolved]
  - Post procedural complication [Unknown]
  - Rhinitis [Unknown]
  - Hypothyroidism [Not Recovered/Not Resolved]
  - Asthenia [Unknown]
  - Device issue [Unknown]

NARRATIVE: CASE EVENT DATE: 201508
